FAERS Safety Report 21778526 (Version 1)
Quarter: 2022Q4

REPORT INFORMATION
  Report Type: Spontaneous
  Country: ZW (occurrence: ZW)
  Receive Date: 20221226
  Receipt Date: 20221226
  Transmission Date: 20230113
  Serious: Yes (Other)
  Sender: FDA-Public Use
  Company Number: ZW-ViiV Healthcare Limited-ZW2022GSK189369

PATIENT

DRUGS (6)
  1. DOLUTEGRAVIR [Interacting]
     Active Substance: DOLUTEGRAVIR
     Indication: HIV infection
     Dosage: 50 MG, 1D
     Dates: start: 202008
  2. DOLUTEGRAVIR [Interacting]
     Active Substance: DOLUTEGRAVIR
     Dosage: 50 MG, BID
  3. RIFAMPIN [Interacting]
     Active Substance: RIFAMPIN
     Indication: Pulmonary tuberculosis
     Dosage: UNK
  4. ABACAVIR [Suspect]
     Active Substance: ABACAVIR
     Indication: HIV infection
     Dosage: UNK
     Dates: start: 202006
  5. LAMIVUDINE [Suspect]
     Active Substance: LAMIVUDINE
     Indication: HIV infection
     Dosage: UNK
  6. ATAZANAVIR\RITONAVIR [Concomitant]
     Active Substance: ATAZANAVIR\RITONAVIR
     Indication: HIV infection
     Dosage: UNK
     Dates: start: 202006

REACTIONS (8)
  - Pathogen resistance [Unknown]
  - Viral mutation identified [Unknown]
  - Virologic failure [Recovering/Resolving]
  - Antiviral drug level below therapeutic [Unknown]
  - Drug interaction [Unknown]
  - Treatment noncompliance [Unknown]
  - Underdose [Unknown]
  - Off label use [Unknown]
